FAERS Safety Report 10551189 (Version 1)
Quarter: 2014Q4

REPORT INFORMATION
  Report Type: Spontaneous
  Country: US (occurrence: None)
  Receive Date: 20141028
  Receipt Date: 20141028
  Transmission Date: 20150529
  Serious: Yes (Other)
  Sender: FDA-Public Use
  Company Number: None

PATIENT
  Age: 79 Year
  Sex: Male
  Weight: 104.33 kg

DRUGS (6)
  1. CLINDAMYCIN [Suspect]
     Active Substance: CLINDAMYCIN\CLINDAMYCIN PHOSPHATE
     Indication: LOCALISED INFECTION
     Route: 048
     Dates: start: 20141003, end: 20141014
  2. METFORMIN [Concomitant]
     Active Substance: METFORMIN HYDROCHLORIDE
  3. SYMBASTATIN [Concomitant]
  4. GLIPISIDE [Concomitant]
  5. OMEPROZLE [Concomitant]
  6. FROSNOPRIL [Concomitant]

REACTIONS (4)
  - Abdominal pain upper [None]
  - Gastrooesophageal reflux disease [None]
  - Dyspepsia [None]
  - Eating disorder [None]
